FAERS Safety Report 8287279-3 (Version None)
Quarter: 2012Q2

REPORT INFORMATION
  Report Type: 
  Country: None (occurrence: None)
  Receive Date: 20120416
  Receipt Date: 20120416
  Transmission Date: 20120825
  Serious: Yes (Other)
  Sender: FDA-Public Use
  Company Number: None

PATIENT
  Age: 29 Year
  Sex: Female
  Weight: 59.874 kg

DRUGS (1)
  1. PARAGARD T 380A [Suspect]
     Indication: CONTRACEPTION
     Dates: start: 20081220, end: 20120413

REACTIONS (16)
  - SUICIDAL IDEATION [None]
  - ANXIETY [None]
  - BACK PAIN [None]
  - PANIC ATTACK [None]
  - ALOPECIA [None]
  - MENORRHAGIA [None]
  - VISION BLURRED [None]
  - DECREASED INTEREST [None]
  - DEPRESSION [None]
  - ARTHRALGIA [None]
  - FATIGUE [None]
  - HAIR TEXTURE ABNORMAL [None]
  - MOOD ALTERED [None]
  - HEADACHE [None]
  - INSOMNIA [None]
  - CONFUSIONAL STATE [None]
